FAERS Safety Report 15953786 (Version 2)
Quarter: 2019Q1

REPORT INFORMATION
  Report Type: Spontaneous
  Country: CA (occurrence: CA)
  Receive Date: 20190212
  Receipt Date: 20190215
  Transmission Date: 20190417
  Serious: Yes (Death, Other)
  Sender: FDA-Public Use
  Company Number: CA-PFIZER INC-2019058788

PATIENT
  Age: 16 Year
  Sex: Male

DRUGS (5)
  1. CYCLOPHOSPHAMIDE. [Suspect]
     Active Substance: CYCLOPHOSPHAMIDE
     Indication: TERATOMA
     Dosage: UNK, CYCLIC
     Dates: start: 1979
  2. VINBLASTINE [Suspect]
     Active Substance: VINBLASTINE
     Indication: TERATOMA
     Dosage: UNK, CYCLIC
     Dates: start: 1979
  3. CISPLATIN. [Suspect]
     Active Substance: CISPLATIN
     Indication: TERATOMA
     Dosage: UNK, CYCLIC
     Dates: start: 1979
  4. ACTINOMYCIN D [Suspect]
     Active Substance: DACTINOMYCIN
     Indication: TERATOMA
     Dosage: UNK, CYCLIC
     Dates: start: 1979
  5. BLEOMYCIN SULFATE [Suspect]
     Active Substance: BLEOMYCIN SULFATE
     Indication: TERATOMA
     Dosage: UNK, CYCLIC
     Dates: start: 1979

REACTIONS (3)
  - Bone marrow failure [Unknown]
  - Second primary malignancy [Unknown]
  - Acute lymphocytic leukaemia [Unknown]

NARRATIVE: CASE EVENT DATE: 1980
